FAERS Safety Report 15861650 (Version 1)
Quarter: 2019Q1

REPORT INFORMATION
  Report Type: Spontaneous
  Country: US (occurrence: US)
  Receive Date: 20190124
  Receipt Date: 20190124
  Transmission Date: 20190417
  Serious: No
  Sender: FDA-Public Use
  Company Number: US-BAYER-2019-017887

PATIENT
  Sex: Female

DRUGS (14)
  1. FISH OIL [Concomitant]
     Active Substance: FISH OIL
  2. METFORMIN HCL [Concomitant]
     Active Substance: METFORMIN HYDROCHLORIDE
  3. TEGRETOL [Concomitant]
     Active Substance: CARBAMAZEPINE
  4. ASCORBIC ACID. [Concomitant]
     Active Substance: ASCORBIC ACID
  5. BETASERON [Suspect]
     Active Substance: INTERFERON BETA-1B
     Indication: MULTIPLE SCLEROSIS
     Dosage: 0.25 MG, QOD
     Route: 058
     Dates: start: 201712
  6. COZAAR [Concomitant]
     Active Substance: LOSARTAN POTASSIUM
  7. DIAZEPAM. [Concomitant]
     Active Substance: DIAZEPAM
  8. BACLOFEN. [Concomitant]
     Active Substance: BACLOFEN
  9. BUTALBITAL [Concomitant]
     Active Substance: BUTALBITAL
  10. FLONASE SENSIMIST ALLERGY RELIEF [Concomitant]
     Active Substance: FLUTICASONE FUROATE
  11. GABAPENTIN. [Concomitant]
     Active Substance: GABAPENTIN
  12. IBUPROFEN. [Concomitant]
     Active Substance: IBUPROFEN
  13. PROVIGIL [CHORIONIC GONADOTROPHIN] [Concomitant]
     Active Substance: GONADOTROPHIN, CHORIONIC
  14. MULTIVITAMIN [VITAMINS NOS] [Concomitant]

REACTIONS (1)
  - Back pain [Not Recovered/Not Resolved]
